FAERS Safety Report 8507014-0 (Version None)
Quarter: 2012Q3

REPORT INFORMATION
  Report Type: 
  Country: None (occurrence: None)
  Receive Date: 20120712
  Receipt Date: 20120705
  Transmission Date: 20120928
  Serious: Yes (Death, Hospitalization)
  Sender: FDA-Public Use
  Company Number: DE-CELGENEUS-062-50794-12060405

PATIENT
  Age: 74 Year
  Sex: Male
  Weight: 78.5 kg

DRUGS (4)
  1. VIDAZA [Suspect]
     Route: 065
     Dates: start: 20120514, end: 20120521
  2. VIDAZA [Suspect]
     Dosage: 75 MILLIGRAM/SQ. METER
     Route: 041
     Dates: start: 20120416, end: 20120420
  3. ASPIRIN [Concomitant]
     Route: 065
  4. METOPROLOL TARTRATE [Concomitant]
     Indication: PROPHYLAXIS
     Route: 065

REACTIONS (3)
  - ESCHERICHIA SEPSIS [None]
  - OESOPHAGEAL CANDIDIASIS [None]
  - STOMATITIS [None]
